FAERS Safety Report 25409503 (Version 1)
Quarter: 2025Q2

REPORT INFORMATION
  Report Type: Spontaneous
  Country: US (occurrence: US)
  Receive Date: 20250607
  Receipt Date: 20250607
  Transmission Date: 20250716
  Serious: No
  Sender: SANOFI AVENTIS
  Company Number: US-SA-2025SA159391

PATIENT
  Sex: Female
  Weight: 95.59 kg

DRUGS (17)
  1. KEVZARA [Suspect]
     Active Substance: SARILUMAB
     Indication: Rheumatoid arthritis
     Dosage: 200 MG QOW
     Route: 058
  2. ZESTRIL [Concomitant]
     Active Substance: LISINOPRIL
  3. MAXEPA [DOCOSAHEXAENOIC ACID;EICOSAPENTAENOIC ACID] [Concomitant]
  4. TYLENOL [Concomitant]
     Active Substance: ACETAMINOPHEN
  5. VITAMINS [Concomitant]
     Active Substance: VITAMINS
  6. POTASSIUM [Concomitant]
     Active Substance: POTASSIUM
  7. SUPER MULTIPLE [Concomitant]
  8. MINERALS\VITAMINS [Concomitant]
     Active Substance: MINERALS\VITAMINS
  9. MAXZIDE [Concomitant]
     Active Substance: HYDROCHLOROTHIAZIDE\TRIAMTERENE
  10. NEXIUM [Concomitant]
     Active Substance: ESOMEPRAZOLE MAGNESIUM
  11. ECOTRIN [Concomitant]
     Active Substance: ASPIRIN
  12. ALLEREASE [Concomitant]
  13. ACID REDUCER [CIMETIDINE] [Concomitant]
  14. ATENOLOL [Concomitant]
     Active Substance: ATENOLOL
  15. LIPITOR [Concomitant]
     Active Substance: ATORVASTATIN CALCIUM
  16. ZOLOFT [Concomitant]
     Active Substance: SERTRALINE HYDROCHLORIDE
  17. AMBIEN [Concomitant]
     Active Substance: ZOLPIDEM TARTRATE

REACTIONS (2)
  - Urinary tract infection [Unknown]
  - Infection [Unknown]
